FAERS Safety Report 4469718-9 (Version None)
Quarter: 2004Q3

REPORT INFORMATION
  Report Type: 
  Country: None (occurrence: None)
  Receive Date: 20040917
  Receipt Date: 20030806
  Transmission Date: 20050211
  Serious: Yes (Other)
  Sender: FDA-Public Use
  Company Number: PHEH2003US07013

PATIENT
  Age: 68 Year
  Sex: Female

DRUGS (1)
  1. FEMARA [Suspect]
     Indication: BREAST CANCER
     Dosage: 2.5 MG, QD
     Dates: start: 20020701

REACTIONS (4)
  - BLOOD PRESSURE INCREASED [None]
  - FLUID RETENTION [None]
  - MILIA [None]
  - PAIN IN EXTREMITY [None]
